FAERS Safety Report 17607595 (Version 1)
Quarter: 2020Q1

REPORT INFORMATION
  Report Type: Spontaneous
  Country: US (occurrence: US)
  Receive Date: 20200331
  Receipt Date: 20200331
  Transmission Date: 20200409
  Serious: Yes (Hospitalization)
  Sender: FDA-Public Use
  Company Number: US-TEVA-2020-US-1216641

PATIENT
  Age: 57 Year
  Sex: Male

DRUGS (13)
  1. MOXIFLOXACIN. [Concomitant]
     Active Substance: MOXIFLOXACIN
  2. STELARA [Concomitant]
     Active Substance: USTEKINUMAB
  3. REPATHA [Concomitant]
     Active Substance: EVOLOCUMAB
  4. COPAXONE [Suspect]
     Active Substance: GLATIRAMER ACETATE
     Route: 058
     Dates: start: 20180524
  5. BENZONATATE. [Concomitant]
     Active Substance: BENZONATATE
  6. BETAMETH DIP [Concomitant]
  7. CARB/LEVO [Concomitant]
     Active Substance: CARBIDOPA\LEVODOPA
  8. METHYLPRED [Concomitant]
     Active Substance: METHYLPREDNISOLONE
  9. LOSARTAN. [Concomitant]
     Active Substance: LOSARTAN
  10. AMLODIPINE [Concomitant]
     Active Substance: AMLODIPINE BESYLATE
  11. EPINEPHRINE. [Concomitant]
     Active Substance: EPINEPHRINE
  12. EZETIMBE [Concomitant]
     Active Substance: EZETIMIBE
  13. PREDNISONE. [Concomitant]
     Active Substance: PREDNISONE

REACTIONS (1)
  - Pneumonia [Not Recovered/Not Resolved]

NARRATIVE: CASE EVENT DATE: 20200323
